FAERS Safety Report 6260023-7 (Version None)
Quarter: 2009Q3

REPORT INFORMATION
  Report Type: 
  Country: None (occurrence: None)
  Receive Date: 20090708
  Receipt Date: 20090625
  Transmission Date: 20100115
  Serious: Yes (Other)
  Sender: FDA-Public Use
  Company Number: NO-ELI_LILLY_AND_COMPANY-NO200906006558

PATIENT
  Sex: Female

DRUGS (2)
  1. STRATTERA [Suspect]
     Indication: ATTENTION DEFICIT/HYPERACTIVITY DISORDER
     Dosage: 50 MG, DAILY (1/D)
     Route: 048
     Dates: start: 20060101, end: 20090301
  2. STRATTERA [Suspect]
     Dosage: 80 MG, DAILY (1/D)
     Route: 048
     Dates: start: 20090301, end: 20090522

REACTIONS (1)
  - HALLUCINATION, VISUAL [None]
